FAERS Safety Report 5767968-2 (Version None)
Quarter: 2008Q2

REPORT INFORMATION
  Report Type: 
  Country: None (occurrence: None)
  Receive Date: 20080612
  Receipt Date: 20080604
  Transmission Date: 20081010
  Serious: Yes (Other)
  Sender: FDA-Public Use
  Company Number: US-PFIZER INC-2008047964

PATIENT
  Sex: Female
  Weight: 58.181 kg

DRUGS (3)
  1. AMLODIPINE [Suspect]
     Indication: HYPERTENSION
     Route: 048
     Dates: start: 20071001, end: 20080602
  2. POTASSIUM CHLORIDE [Concomitant]
  3. FISH OIL [Concomitant]

REACTIONS (5)
  - COUGH [None]
  - DYSPNOEA [None]
  - LUNG NEOPLASM MALIGNANT [None]
  - SINUSITIS [None]
  - WHEEZING [None]
